FAERS Safety Report 4390752-1 (Version None)
Quarter: 2004Q3

REPORT INFORMATION
  Report Type: 
  Country: None (occurrence: None)
  Receive Date: 20040706
  Receipt Date: 20040706
  Transmission Date: 20050211
  Serious: Yes (Other)
  Sender: FDA-Public Use
  Company Number: None

PATIENT
  Age: 56 Year
  Sex: Female
  Weight: 70.3075 kg

DRUGS (1)
  1. TUBERSOL [Suspect]
     Indication: TUBERCULIN TEST
     Dosage: 5 US UNITS PPD-S ID
     Route: 023
     Dates: start: 20040501, end: 20040501

REACTIONS (2)
  - INFLAMMATION [None]
  - RASH [None]
